FAERS Safety Report 15363769 (Version 2)
Quarter: 2019Q1

REPORT INFORMATION
  Report Type: Report from Study
  Country: None (occurrence: RO)
  Receive Date: 20180908
  Receipt Date: 20190210
  Transmission Date: 20190417
  Serious: Yes (Hospitalization, Other)
  Sender: FDA-Public Use
  Company Number: RO-ABBVIE-18S-135-2475124-00

PATIENT
  Age: 80 Year
  Sex: Female

DRUGS (11)
  1. OMEZ [Concomitant]
     Active Substance: OMEPRAZOLE
     Indication: DYSPEPSIA
  2. VIEKIRAX [Suspect]
     Active Substance: OMBITASVIR\PARITAPREVIR\RITONAVIR
     Indication: HEPATITIS C
     Route: 048
     Dates: start: 20180326, end: 20180612
  3. ACTOVEGIN [Concomitant]
     Active Substance: BLOOD, BOVINE
     Indication: DYSPEPSIA
     Route: 048
     Dates: start: 201806
  4. EXVIERA [Suspect]
     Active Substance: DASABUVIR
     Indication: HEPATITIS C
     Route: 048
     Dates: start: 20180326, end: 20180612
  5. VIEKIRAX [Suspect]
     Active Substance: OMBITASVIR\PARITAPREVIR\RITONAVIR
     Indication: HEPATIC CIRRHOSIS
  6. ENAP [Concomitant]
     Active Substance: ENALAPRIL
     Indication: DYSPEPSIA
  7. ENAP [Concomitant]
     Active Substance: ENALAPRIL
     Indication: HYPERTENSION
     Route: 048
     Dates: start: 201806
  8. EXVIERA [Suspect]
     Active Substance: DASABUVIR
     Indication: HEPATIC CIRRHOSIS
  9. OMEZ [Concomitant]
     Active Substance: OMEPRAZOLE
     Indication: LOSS OF CONSCIOUSNESS
     Route: 048
     Dates: start: 201806
  10. PRAMISTAR [Concomitant]
     Active Substance: PRAMIRACETAM SULFATE
     Indication: DYSPEPSIA
  11. PRAMISTAR [Concomitant]
     Active Substance: PRAMIRACETAM SULFATE
     Indication: PRODUCT USED FOR UNKNOWN INDICATION
     Route: 048
     Dates: start: 201806

REACTIONS (8)
  - Hypertension [Recovered/Resolved]
  - Syncope [Recovered/Resolved]
  - Urinary incontinence [Recovered/Resolved]
  - Mobility decreased [Recovered/Resolved]
  - Hemiplegia [Recovered/Resolved]
  - General physical condition abnormal [Recovered/Resolved]
  - Cerebral infarction [Recovered/Resolved]
  - Coma [Recovered/Resolved]

NARRATIVE: CASE EVENT DATE: 20180612
